FAERS Safety Report 6900115-X (Version None)
Quarter: 2010Q3

REPORT INFORMATION
  Report Type: 
  Country: None (occurrence: None)
  Receive Date: 20100803
  Receipt Date: 20100728
  Transmission Date: 20110219
  Serious: No
  Sender: FDA-Public Use
  Company Number: US-CEPHALON-2010003978

PATIENT
  Sex: Female
  Weight: 54 kg

DRUGS (1)
  1. FENTORA [Suspect]
     Indication: CROHN'S DISEASE
     Route: 002

REACTIONS (1)
  - DRUG PRESCRIBING ERROR [None]
